FAERS Safety Report 6644015-1 (Version None)
Quarter: 2010Q1

REPORT INFORMATION
  Report Type: 
  Country: None (occurrence: None)
  Receive Date: 20100319
  Receipt Date: 20100319
  Transmission Date: 20100710
  Serious: Yes (Other)
  Sender: FDA-Public Use
  Company Number: None

PATIENT
  Sex: Female
  Weight: 79.3795 kg

DRUGS (2)
  1. PROTONIX [Suspect]
     Indication: GASTROOESOPHAGEAL REFLUX DISEASE
     Dosage: 40 MGM 1 TAB Q DAY ORAL 2-3 DAYS
     Route: 048
  2. PROTONIX [Suspect]
     Indication: MUSCLE SPASMS
     Dosage: 40 MGM 1 TAB Q DAY ORAL 2-3 DAYS
     Route: 048

REACTIONS (2)
  - CHEST PAIN [None]
  - PRODUCT QUALITY ISSUE [None]
